FAERS Safety Report 9286272 (Version 1)
Quarter: 2013Q2

REPORT INFORMATION
  Report Type: Spontaneous
  Country: US (occurrence: None)
  Receive Date: 20130510
  Receipt Date: 20130510
  Transmission Date: 20140414
  Serious: Yes (Other)
  Sender: FDA-Public Use
  Company Number: None

PATIENT
  Age: 67 Year
  Sex: Male
  Weight: 97.52 kg

DRUGS (1)
  1. CLOPIDOGREL [Suspect]
     Indication: CORONARY ARTERY BYPASS
     Route: 048
     Dates: start: 20120601, end: 20130509

REACTIONS (1)
  - Diarrhoea [None]
